FAERS Safety Report 6748999-2 (Version None)
Quarter: 2010Q2

REPORT INFORMATION
  Report Type: 
  Country: None (occurrence: None)
  Receive Date: 20100601
  Receipt Date: 20100519
  Transmission Date: 20101027
  Serious: Yes (Hospitalization)
  Sender: FDA-Public Use
  Company Number: PHHY2010US32764

PATIENT
  Sex: Male

DRUGS (4)
  1. ZOMETA [Suspect]
     Route: 065
  2. REVLIMID [Suspect]
     Indication: MULTIPLE MYELOMA
     Dosage: 10 MG, QD
     Route: 048
     Dates: start: 20071003, end: 20100201
  3. REVLIMID [Suspect]
     Dosage: 10 MG, QD
     Route: 048
     Dates: start: 20100311
  4. DEXAMETHASONE [Suspect]
     Indication: MULTIPLE MYELOMA
     Dosage: UNK

REACTIONS (3)
  - ALPHA HAEMOLYTIC STREPTOCOCCAL INFECTION [None]
  - OSTEOMYELITIS [None]
  - PERIODONTAL INFECTION [None]
